FAERS Safety Report 10540683 (Version 1)
Quarter: 2014Q4

REPORT INFORMATION
  Report Type: Spontaneous
  Country: CA (occurrence: None)
  Receive Date: 20141023
  Receipt Date: 20141023
  Transmission Date: 20150529
  Serious: No
  Sender: FDA-Public Use
  Company Number: None

PATIENT
  Age: 3 Year
  Sex: Male
  Weight: 15.5 kg

DRUGS (4)
  1. CYTARABINE. [Suspect]
     Active Substance: CYTARABINE
     Dosage: 162.5 MG ARAC ?7800 MG HD ARAC?30 MG IT ARAC WAS DELAYED FOR 10 DAYS
     Dates: end: 20141014
  2. ETOPOSIDE (VP-16) [Suspect]
     Active Substance: ETOPOSIDE
     Dates: end: 20140922
  3. HYDROCORTISONE. [Suspect]
     Active Substance: HYDROCORTISONE
     Dosage: IT?
     Dates: end: 20141014
  4. METHOTREXATE [Suspect]
     Active Substance: METHOTREXATE
     Dosage: 4880 HD MTX?15 MG IT
     Dates: end: 20141014

REACTIONS (3)
  - Transaminases increased [None]
  - Dehydration [None]
  - Mucosal inflammation [None]

NARRATIVE: CASE EVENT DATE: 20141007
